FAERS Safety Report 6822152-6 (Version None)
Quarter: 2010Q3

REPORT INFORMATION
  Report Type: 
  Country: None (occurrence: None)
  Receive Date: 20100708
  Receipt Date: 20100630
  Transmission Date: 20110219
  Serious: Yes (Other)
  Sender: FDA-Public Use
  Company Number: DE-JNJFOC-20100700085

PATIENT
  Sex: Male

DRUGS (4)
  1. TOPAMAX [Suspect]
     Indication: PRODUCT USED FOR UNKNOWN INDICATION
     Dosage: 100 MG - 0 - 100 MG
     Route: 048
  2. ERGENYL [Concomitant]
     Indication: PRODUCT USED FOR UNKNOWN INDICATION
     Dosage: 2-0-3
     Route: 065
  3. UNKNOWN MEDICATION [Concomitant]
     Indication: PRODUCT USED FOR UNKNOWN INDICATION
     Dosage: 1-1-1 + 1.5
     Route: 048
  4. UNKNOWN MEDICATION [Concomitant]
     Dosage: 0-0-1
     Route: 065

REACTIONS (4)
  - ABDOMINAL PAIN [None]
  - LIPASE INCREASED [None]
  - NAUSEA [None]
  - VOMITING [None]
